FAERS Safety Report 11654942 (Version 3)
Quarter: 2016Q1

REPORT INFORMATION
  Report Type: Spontaneous
  Country: US (occurrence: US)
  Receive Date: 20151023
  Receipt Date: 20160303
  Transmission Date: 20160525
  Serious: No
  Sender: FDA-Public Use
  Company Number: US-PFIZER INC-2015359719

PATIENT
  Age: 63 Year
  Sex: Female
  Weight: 100 kg

DRUGS (6)
  1. METOPROLOL. [Concomitant]
     Active Substance: METOPROLOL
     Dosage: 1 DF, 2X/DAY
  2. PREMARIN [Suspect]
     Active Substance: ESTROGENS, CONJUGATED
     Indication: LICHEN SCLEROSUS
     Dosage: 1 SMALL DOT, ENOUGH TO PUT ON THE FINGER, 2X/WEEK
     Route: 067
     Dates: start: 2015, end: 201510
  3. LISINOPRIL. [Concomitant]
     Active Substance: LISINOPRIL
     Indication: HYPERTENSION
     Dosage: 1 DF, 1X/DAY
  4. METFORMIN [Concomitant]
     Active Substance: METFORMIN HYDROCHLORIDE
     Indication: DIABETES MELLITUS
     Dosage: 2 DF, 2X/DAY
     Dates: start: 2015
  5. AMBIEN [Concomitant]
     Active Substance: ZOLPIDEM TARTRATE
     Indication: SLEEP DISORDER
     Dosage: 5 MG, 1X/DAY AT NIGHT
  6. PREMARIN [Suspect]
     Active Substance: ESTROGENS, CONJUGATED
     Indication: ATROPHIC VULVOVAGINITIS

REACTIONS (4)
  - Vulvovaginal burning sensation [Recovered/Resolved]
  - Vulvovaginal swelling [Recovered/Resolved]
  - Hypersensitivity [Recovered/Resolved]
  - Vulvovaginal erythema [Recovered/Resolved]

NARRATIVE: CASE EVENT DATE: 201508
